FAERS Safety Report 9620394 (Version 1)
Quarter: 2013Q4

REPORT INFORMATION
  Report Type: Spontaneous
  Country: US (occurrence: US)
  Receive Date: 20131015
  Receipt Date: 20131015
  Transmission Date: 20140711
  Serious: No
  Sender: FDA-Public Use
  Company Number: -SAAVPROD-BMS16260705

PATIENT
  Sex: 0

DRUGS (1)
  1. AVALIDE TABS 150MG/12.5MG [Suspect]
     Dosage: 1DF=150/12.5MG

REACTIONS (1)
  - Circumstance or information capable of leading to medication error [Unknown]
